FAERS Safety Report 11532994 (Version 1)
Quarter: 2015Q3

REPORT INFORMATION
  Report Type: Spontaneous
  Country: US (occurrence: US)
  Receive Date: 20150921
  Receipt Date: 20150921
  Transmission Date: 20151125
  Serious: Yes (Death, Hospitalization)
  Sender: FDA-Public Use
  Company Number: US-BAXTER-2015BAX050592

PATIENT
  Age: 58 Year
  Sex: Male

DRUGS (1)
  1. 0.9% SODIUM CHLORIDE INJECTION [Suspect]
     Active Substance: SODIUM CHLORIDE
     Indication: CHRONIC KIDNEY DISEASE
     Route: 010
     Dates: start: 20100903

REACTIONS (2)
  - Peripheral vascular disorder [Fatal]
  - Disease complication [Fatal]

NARRATIVE: CASE EVENT DATE: 20150907
